FAERS Safety Report 12303599 (Version 1)
Quarter: 2016Q2

REPORT INFORMATION
  Report Type: Spontaneous
  Country: US (occurrence: None)
  Receive Date: 20160425
  Receipt Date: 20160425
  Transmission Date: 20160815
  Serious: No
  Sender: FDA-Public Use
  Company Number: None

PATIENT
  Sex: Female

DRUGS (1)
  1. XELJANZ [Suspect]
     Active Substance: TOFACITINIB CITRATE
     Route: 048
     Dates: start: 20151126

REACTIONS (5)
  - Headache [None]
  - Drug ineffective [None]
  - Myalgia [None]
  - Anaemia [None]
  - Gastrointestinal disorder [None]
